FAERS Safety Report 12427297 (Version 2)
Quarter: 2016Q2

REPORT INFORMATION
  Report Type: Spontaneous
  Country: PL (occurrence: PL)
  Receive Date: 20160602
  Receipt Date: 20160610
  Transmission Date: 20160815
  Serious: Yes (Hospitalization)
  Sender: FDA-Public Use
  Company Number: PHHY2016PL072581

PATIENT
  Age: 65 Year
  Sex: Female

DRUGS (12)
  1. CYCLOPHOSPHAMIDE. [Concomitant]
     Active Substance: CYCLOPHOSPHAMIDE
     Dosage: 600 MG, QW4
     Route: 042
  2. PENTOXIFYLLINE. [Suspect]
     Active Substance: PENTOXIFYLLINE
     Indication: SYSTEMIC SCLEROSIS
     Route: 065
     Dates: start: 200404
  3. ENALAPRIL [Suspect]
     Active Substance: ENALAPRIL
     Dosage: 10 MG, BID
     Route: 065
  4. CYCLOPHOSPHAMIDE. [Concomitant]
     Active Substance: CYCLOPHOSPHAMIDE
     Indication: SYSTEMIC SCLEROSIS
     Dosage: 600 MG, QW4
     Route: 042
  5. METHYLPREDNISOLONE. [Concomitant]
     Active Substance: METHYLPREDNISOLONE
     Indication: SYSTEMIC SCLEROSIS
     Dosage: 8 MG, QD
     Route: 065
  6. CYCLOPHOSPHAMIDE. [Concomitant]
     Active Substance: CYCLOPHOSPHAMIDE
     Route: 042
     Dates: end: 200508
  7. ENALAPRIL [Suspect]
     Active Substance: ENALAPRIL
     Indication: SYSTEMIC SCLEROSIS
     Dosage: 2.5 MG, BID
     Route: 065
  8. CYCLOPHOSPHAMIDE. [Concomitant]
     Active Substance: CYCLOPHOSPHAMIDE
     Dosage: 1000 MG, UNK
     Route: 042
  9. CYCLOPHOSPHAMIDE. [Concomitant]
     Active Substance: CYCLOPHOSPHAMIDE
     Dosage: 600 MG, UNK
     Route: 042
  10. METHYLPREDNISOLONE. [Concomitant]
     Active Substance: METHYLPREDNISOLONE
     Dosage: 8 MG, QD
     Route: 048
  11. METHYLPREDNISOLONE. [Concomitant]
     Active Substance: METHYLPREDNISOLONE
     Dosage: 20 MG, QD
     Route: 048
  12. METHYLPREDNISOLONE. [Concomitant]
     Active Substance: METHYLPREDNISOLONE
     Dosage: 8 MG, QD
     Route: 048

REACTIONS (5)
  - Disease progression [Unknown]
  - Haematuria [Unknown]
  - Creatinine renal clearance decreased [Unknown]
  - Proteinuria [Unknown]
  - Muscle tightness [Unknown]

NARRATIVE: CASE EVENT DATE: 200406
